FAERS Safety Report 7365546-5 (Version None)
Quarter: 2011Q1

REPORT INFORMATION
  Report Type: 
  Country: None (occurrence: None)
  Receive Date: 20110322
  Receipt Date: 20110216
  Transmission Date: 20110831
  Serious: Yes (Hospitalization, Other)
  Sender: FDA-Public Use
  Company Number: US-BAYER-201042097NA

PATIENT
  Sex: Female
  Weight: 54.422 kg

DRUGS (3)
  1. YAZ [Suspect]
     Indication: DYSMENORRHOEA
  2. YAZ [Suspect]
     Indication: PREMENSTRUAL SYNDROME
     Dosage: UNK
     Route: 048
     Dates: start: 20070101, end: 20070401
  3. YAZ [Suspect]
     Indication: MENSTRUATION IRREGULAR

REACTIONS (6)
  - PULMONARY EMBOLISM [None]
  - MUSCULAR WEAKNESS [None]
  - DEEP VEIN THROMBOSIS [None]
  - DYSPNOEA [None]
  - PAIN IN EXTREMITY [None]
  - OEDEMA PERIPHERAL [None]
